FAERS Safety Report 5713333-3 (Version None)
Quarter: 2008Q2

REPORT INFORMATION
  Report Type: 
  Country: None (occurrence: None)
  Receive Date: 20080422
  Receipt Date: 20080414
  Transmission Date: 20081010
  Serious: Yes (Other)
  Sender: FDA-Public Use
  Company Number: US-AMGEN-KDL272740

PATIENT
  Sex: Female
  Weight: 98.1 kg

DRUGS (8)
  1. ENBREL [Suspect]
     Indication: RHEUMATOID ARTHRITIS
     Route: 058
     Dates: start: 20080321, end: 20080324
  2. METHOTREXATE [Concomitant]
     Dates: start: 20070403
  3. ZESTRIL [Concomitant]
  4. HYDROXYCHLOROQUINE [Concomitant]
  5. AMITRIPTYLINE HCL [Concomitant]
  6. HYDROCODONE BITARTRATE [Concomitant]
  7. TIZANIDINE HCL [Concomitant]
  8. FOLIC ACID [Concomitant]

REACTIONS (4)
  - ERYTHEMA [None]
  - RASH [None]
  - SWELLING FACE [None]
  - URTICARIA [None]
